FAERS Safety Report 17296803 (Version 2)
Quarter: 2020Q1

REPORT INFORMATION
  Report Type: Spontaneous
  Country: IT (occurrence: IT)
  Receive Date: 20200122
  Receipt Date: 20200129
  Transmission Date: 20200409
  Serious: Yes (Hospitalization)
  Sender: FDA-Public Use
  Company Number: IT-ASTRAZENECA-2020SE08166

PATIENT
  Sex: Female

DRUGS (1)
  1. FASENRA [Suspect]
     Active Substance: BENRALIZUMAB
     Indication: ASTHMA
     Dosage: THE FIRST THREE DOSES EVERY 28 DAYS AND THEN EVERY 8 WEEKS
     Route: 058

REACTIONS (2)
  - Eosinophilia [Unknown]
  - Polyneuropathy [Unknown]
